FAERS Safety Report 7934124-9 (Version None)
Quarter: 2011Q4

REPORT INFORMATION
  Report Type: 
  Country: None (occurrence: None)
  Receive Date: 20111118
  Receipt Date: 20111107
  Transmission Date: 20120403
  Serious: Yes (Death)
  Sender: FDA-Public Use
  Company Number: 1000024681

PATIENT
  Age: 80 Year
  Sex: Female

DRUGS (3)
  1. ZOLPIDEM TARTRATE [Suspect]
     Dosage: 1 (1 ,1 IN 1 D)
     Dates: start: 20110301
  2. MEMANTINE HYDROCHLORIDE [Suspect]
     Indication: DEMENTIA ALZHEIMER'S TYPE
     Dosage: 5 MG (5 MG, 1 IN 1 D), ORAL
     Route: 048
     Dates: start: 20110829, end: 20110921
  3. LENDORM [Suspect]
     Dosage: 1 (1, 1 IN 1 D), ORAL
     Route: 048
     Dates: start: 20070701

REACTIONS (2)
  - FALL [None]
  - DIZZINESS [None]
